FAERS Safety Report 4490392-X (Version None)
Quarter: 2004Q3

REPORT INFORMATION
  Report Type: 
  Country: None (occurrence: None)
  Receive Date: 20040921
  Receipt Date: 20031119
  Transmission Date: 20050211
  Serious: Yes (Hospitalization)
  Sender: FDA-Public Use
  Company Number: 163-20785-03110389

PATIENT
  Age: 30 Year
  Sex: Male

DRUGS (8)
  1. THALOMID [Suspect]
     Dosage: 400 MG, DAILY, ORAL
     Route: 048
     Dates: start: 20030703, end: 20030930
  2. DEXAMETHASONE [Suspect]
     Indication: MULTIPLE MYELOMA
     Dosage: 42 MG, DAILY, ORAL
     Route: 048
     Dates: start: 20030814, end: 20030817
  3. DEXAMETHASONE [Suspect]
     Indication: MULTIPLE MYELOMA
     Dosage: 42 MG, DAILY, ORAL
     Route: 048
     Dates: start: 20030701
  4. CYCLOPHOSPHAMIDE [Suspect]
     Indication: MULTIPLE MYELOMA
     Dosage: 824 MG, DAILY, INTRAVENOUS
     Route: 042
     Dates: start: 20030814, end: 20030817
  5. ETOPOSIDE [Suspect]
     Indication: MULTIPLE MYELOMA
     Dosage: 82 MG, DAILY, INTRAVENOUS
     Route: 042
     Dates: start: 20030814, end: 20030817
  6. CISPLATIN [Suspect]
     Indication: MULTIPLE MYELOMA
     Dosage: 31 MG, DAILY, INTRAVENOUS
     Route: 042
     Dates: start: 20030814, end: 20030817
  7. VINCRISTINE [Concomitant]
  8. ADRIAMYCIN PFS [Concomitant]

REACTIONS (3)
  - CHEST PAIN [None]
  - DYSPNOEA [None]
  - PLEURISY [None]
